FAERS Safety Report 5850532-4 (Version None)
Quarter: 2008Q3

REPORT INFORMATION
  Report Type: 
  Country: None (occurrence: None)
  Receive Date: 20080820
  Receipt Date: 20080808
  Transmission Date: 20090109
  Serious: Yes (Hospitalization, Other)
  Sender: FDA-Public Use
  Company Number: KR-JNJFOC-20080706465

PATIENT
  Age: 20 Year
  Sex: Female
  Weight: 40 kg

DRUGS (5)
  1. REMICADE [Suspect]
     Indication: CROHN'S DISEASE
     Dosage: 6 TIMES
     Route: 042
  2. AZATHIOPRINE [Suspect]
     Indication: CROHN'S DISEASE
     Route: 048
  3. PENTASA [Concomitant]
     Indication: CROHN'S DISEASE
     Route: 048
  4. SOLAND [Concomitant]
     Indication: CROHN'S DISEASE
     Route: 048
  5. RANAS [Concomitant]
     Indication: CROHN'S DISEASE
     Route: 048

REACTIONS (2)
  - NEUTROPENIA [None]
  - PYREXIA [None]
